FAERS Safety Report 9310859 (Version 1)
Quarter: 2013Q2

REPORT INFORMATION
  Report Type: Spontaneous
  Country: US (occurrence: None)
  Receive Date: 20130523
  Receipt Date: 20130523
  Transmission Date: 20140414
  Serious: No
  Sender: FDA-Public Use
  Company Number: None

PATIENT
  Age: 71 Year
  Sex: Female

DRUGS (1)
  1. DULERA [Suspect]
     Dosage: 2 PUFFS TWICE DAILY INHAL
     Dates: start: 20130404, end: 20130508

REACTIONS (2)
  - Device malfunction [None]
  - Device ineffective [None]
